FAERS Safety Report 11750351 (Version 1)
Quarter: 2015Q4

REPORT INFORMATION
  Report Type: Spontaneous
  Country: BR (occurrence: BR)
  Receive Date: 20151118
  Receipt Date: 20151118
  Transmission Date: 20160304
  Serious: Yes (Hospitalization, Other)
  Sender: FDA-Public Use
  Company Number: BR-JNJFOC-20151113733

PATIENT
  Age: 41 Year
  Sex: Male

DRUGS (14)
  1. CYCLOBENZAPRINE [Concomitant]
     Active Substance: CYCLOBENZAPRINE
     Route: 065
  2. GOLIMUMAB [Suspect]
     Active Substance: GOLIMUMAB
     Indication: POLYARTHRITIS
     Route: 058
     Dates: start: 20150305
  3. GOLIMUMAB [Suspect]
     Active Substance: GOLIMUMAB
     Indication: RHEUMATOID ARTHRITIS
     Route: 058
     Dates: start: 20150305
  4. GOLIMUMAB [Suspect]
     Active Substance: GOLIMUMAB
     Indication: RHEUMATOID ARTHRITIS
     Route: 058
     Dates: start: 20150205
  5. LEFLUNOMIDE. [Concomitant]
     Active Substance: LEFLUNOMIDE
     Route: 065
  6. DIACEREIN [Concomitant]
     Active Substance: DIACEREIN
     Route: 065
  7. NAPROXEN. [Concomitant]
     Active Substance: NAPROXEN
     Route: 065
  8. VITAMIN D3 [Concomitant]
     Active Substance: CHOLECALCIFEROL
     Dosage: OILY SOLUTION 5 DROPS
     Route: 065
  9. AMLODIPINE [Concomitant]
     Active Substance: AMLODIPINE BESYLATE
     Route: 065
  10. HYDROXYCHLOROQUINE SULFATE. [Concomitant]
     Active Substance: HYDROXYCHLOROQUINE SULFATE
     Route: 065
  11. PREDNISONE. [Concomitant]
     Active Substance: PREDNISONE
     Route: 065
  12. CODEINE [Concomitant]
     Active Substance: CODEINE
     Indication: PAIN
     Route: 065
  13. GOLIMUMAB [Suspect]
     Active Substance: GOLIMUMAB
     Indication: POLYARTHRITIS
     Route: 058
     Dates: start: 20150205
  14. OMEPRAZOLE. [Concomitant]
     Active Substance: OMEPRAZOLE
     Dosage: IN THE MORNING UNDER FASTING AND 30 MINUTES AFTER THE DINNER
     Route: 065

REACTIONS (10)
  - Paraesthesia [Unknown]
  - Dysuria [Unknown]
  - Staphylococcal sepsis [Recovering/Resolving]
  - Liver disorder [Recovered/Resolved]
  - Pulmonary embolism [Recovered/Resolved]
  - Device related infection [Recovering/Resolving]
  - Polyarthritis [Unknown]
  - Arthritis bacterial [Recovered/Resolved]
  - Abscess limb [Unknown]
  - Transfusion [Unknown]

NARRATIVE: CASE EVENT DATE: 2015
